FAERS Safety Report 13272941 (Version 1)
Quarter: 2017Q1

REPORT INFORMATION
  Report Type: Spontaneous
  Country: US (occurrence: US)
  Receive Date: 20170227
  Receipt Date: 20170227
  Transmission Date: 20170428
  Serious: Yes (Other)
  Sender: FDA-Public Use
  Company Number: None

PATIENT
  Age: 24 Year
  Sex: Female
  Weight: 59.42 kg

DRUGS (1)
  1. DAYSEE [Suspect]
     Active Substance: ETHINYL ESTRADIOL\LEVONORGESTREL
     Indication: CONTRACEPTION
     Dosage: DOSE AMOUNT - 0.15/0.03/.001 DF
     Route: 048
     Dates: start: 20160701

REACTIONS (2)
  - Acne [None]
  - Vaginal haemorrhage [None]

NARRATIVE: CASE EVENT DATE: 20161001
